FAERS Safety Report 8342816 (Version 7)
Quarter: 2013Q2

REPORT INFORMATION
  Report Type: Spontaneous
  Country: US (occurrence: US)
  Receive Date: 20120119
  Receipt Date: 20130626
  Transmission Date: 20140414
  Serious: Yes (Hospitalization, Other)
  Sender: FDA-Public Use
  Company Number: US-PFIZER INC-2012002724

PATIENT
  Age: 37 Year
  Sex: Female
  Weight: 64.85 kg

DRUGS (6)
  1. LYRICA [Suspect]
     Indication: FIBROMYALGIA
     Dosage: 200 MG, 3X/DAY
     Route: 048
     Dates: start: 2007
  2. LYRICA [Suspect]
     Indication: NEURALGIA
  3. KLONOPIN [Concomitant]
     Dosage: 1 MG, 4X/DAY
  4. CELEXA [Concomitant]
     Indication: DEPRESSION
     Dosage: 40 MG, 1X/DAY
  5. SEROQUEL [Concomitant]
     Dosage: 300 MG, 1X/DAY
  6. DICYCLOMINE [Concomitant]
     Dosage: UNK, AS NEEDED

REACTIONS (5)
  - Suicidal ideation [Unknown]
  - Depression [Not Recovered/Not Resolved]
  - Drug ineffective [Unknown]
  - Attention deficit/hyperactivity disorder [Unknown]
  - Blood count abnormal [Unknown]
